FAERS Safety Report 6303674-3 (Version None)
Quarter: 2009Q3

REPORT INFORMATION
  Report Type: 
  Country: None (occurrence: None)
  Receive Date: 20090807
  Receipt Date: 20090807
  Transmission Date: 20100115
  Serious: Yes (Hospitalization)
  Sender: FDA-Public Use
  Company Number: None

PATIENT
  Sex: Male
  Weight: 73.0291 kg

DRUGS (2)
  1. TRUVADA [Suspect]
     Indication: ACQUIRED IMMUNODEFICIENCY SYNDROME
     Dosage: 1 TABLET ONCE DAILY PO
     Route: 048
     Dates: start: 20030615, end: 20090727
  2. TRUVADA [Suspect]
     Indication: HIV INFECTION
     Dosage: 1 TABLET ONCE DAILY PO
     Route: 048
     Dates: start: 20030615, end: 20090727

REACTIONS (3)
  - FANCONI SYNDROME [None]
  - LOSS OF CONSCIOUSNESS [None]
  - ROAD TRAFFIC ACCIDENT [None]
